FAERS Safety Report 7398399-X (Version None)
Quarter: 2011Q2

REPORT INFORMATION
  Report Type: 
  Country: None (occurrence: None)
  Receive Date: 20110406
  Receipt Date: 20110323
  Transmission Date: 20111010
  Serious: Yes (Other)
  Sender: FDA-Public Use
  Company Number: US-MYLANLABS-2011S1006279

PATIENT
  Age: 61 Year
  Sex: Female

DRUGS (3)
  1. GENTAMICIN [Concomitant]
     Indication: PERITONITIS BACTERIAL
     Route: 033
  2. GLUCOSE [Concomitant]
     Indication: PERITONEAL DIALYSIS
     Route: 065
  3. VANCOMYCIN [Suspect]
     Indication: PERITONITIS BACTERIAL
     Route: 033

REACTIONS (1)
  - PERITONITIS [None]
